FAERS Safety Report 24247033 (Version 1)
Quarter: 2024Q3

REPORT INFORMATION
  Report Type: Report from Study
  Country: IT (occurrence: IT)
  Receive Date: 20240826
  Receipt Date: 20240826
  Transmission Date: 20241017
  Serious: Yes (Other)
  Sender: ROCHE
  Company Number: None

PATIENT

DRUGS (2)
  1. TRASTUZUMAB [Suspect]
     Active Substance: TRASTUZUMAB
     Indication: HER2 positive breast cancer
     Route: 065
  2. PERTUZUMAB [Suspect]
     Active Substance: PERTUZUMAB
     Indication: HER2 positive breast cancer
     Route: 065

REACTIONS (20)
  - Neutropenia [Unknown]
  - Neurotoxicity [Unknown]
  - Transaminases increased [Unknown]
  - Mucosal inflammation [Unknown]
  - Diarrhoea [Unknown]
  - Anaemia [Unknown]
  - Nausea [Unknown]
  - Asthenia [Unknown]
  - Urinary tract infection [Unknown]
  - Ejection fraction decreased [Unknown]
  - Dysgeusia [Unknown]
  - Abdominal pain [Unknown]
  - Nail dystrophy [Unknown]
  - Eye disorder [Unknown]
  - Haemorrhoids [Unknown]
  - Vomiting [Unknown]
  - Rash [Unknown]
  - Myalgia [Unknown]
  - Drug hypersensitivity [Unknown]
  - Febrile neutropenia [Unknown]
